FAERS Safety Report 8770985 (Version 3)
Quarter: 2012Q4

REPORT INFORMATION
  Report Type: 
  Country: US (occurrence: US)
  Receive Date: 20120906
  Receipt Date: 20121016
  Transmission Date: 20130627
  Serious: Yes (Other)
  Sender: FDA-Public Use
  Company Number: US-PFIZER INC-2012215715

PATIENT
  Age: 47 Year
  Sex: Female

DRUGS (1)
  1. DILANTIN-125 [Suspect]
     Dosage: UNK
     Dates: start: 201011

REACTIONS (2)
  - Stevens-Johnson syndrome [Unknown]
  - Drug hypersensitivity [Unknown]
